FAERS Safety Report 7141695-1 (Version None)
Quarter: 2010Q4

REPORT INFORMATION
  Report Type: 
  Country: None (occurrence: None)
  Receive Date: 20101124
  Receipt Date: 20101114
  Transmission Date: 20110411
  Serious: Yes (Other)
  Sender: FDA-Public Use
  Company Number: 2010005044

PATIENT
  Age: 71 Year
  Sex: Male

DRUGS (6)
  1. ERLOTINIB/PLACEBO (ERLOTINIB) (TABLET) (ERLOTINIB) [Suspect]
     Indication: HEPATIC NEOPLASM MALIGNANT
     Dosage: (150 MG), ORAL
     Route: 048
     Dates: start: 20101104, end: 20101114
  2. SORAFENIB [Suspect]
     Indication: HEPATIC NEOPLASM MALIGNANT
     Dosage: (400 MG, BID), ORAL
     Route: 048
     Dates: start: 20101104, end: 20101114
  3. VASCASE PLUS (DYNORM PLUS) [Concomitant]
  4. SIMVASTATIN [Concomitant]
  5. METFORMIN HCL [Concomitant]
  6. ER OSMO ADALAT [Concomitant]

REACTIONS (1)
  - RETINAL ARTERY OCCLUSION [None]
